FAERS Safety Report 10476468 (Version 1)
Quarter: 2014Q3

REPORT INFORMATION
  Report Type: Spontaneous
  Country: US (occurrence: US)
  Receive Date: 20140925
  Receipt Date: 20140925
  Transmission Date: 20150326
  Serious: Yes (Hospitalization)
  Sender: FDA-Public Use
  Company Number: US-GLAXOSMITHKLINE-A1090916A

PATIENT
  Sex: Female

DRUGS (3)
  1. LAMICTAL XR [Suspect]
     Active Substance: LAMOTRIGINE
     Indication: CONVULSION
     Dosage: 250MG UNKNOWN
     Route: 065
     Dates: start: 201207
  2. UNSPECIFIED [Suspect]
     Active Substance: UNSPECIFIED INGREDIENT
  3. IBUPROFEN. [Suspect]
     Active Substance: IBUPROFEN
     Indication: PRODUCT USED FOR UNKNOWN INDICATION
     Dosage: 2400MG UNKNOWN
     Route: 065

REACTIONS (1)
  - Adrenal insufficiency [Unknown]
